FAERS Safety Report 8409067-7 (Version None)
Quarter: 2012Q2

REPORT INFORMATION
  Report Type: 
  Country: None (occurrence: None)
  Receive Date: 20120604
  Receipt Date: 20120529
  Transmission Date: 20120825
  Serious: Yes (Life-Threatening, Hospitalization, Other)
  Sender: FDA-Public Use
  Company Number: US-GILEAD-2012-0055875

PATIENT
  Sex: Male

DRUGS (8)
  1. VIREAD [Suspect]
     Indication: HIV INFECTION
     Dosage: 300 MG, QD
     Route: 048
     Dates: start: 20090416
  2. RITONAVIR [Suspect]
     Indication: HIV INFECTION
     Dosage: UNK
     Dates: start: 20020606
  3. ALBUTEROL [Concomitant]
     Dosage: UNK
     Dates: start: 20030301
  4. CLOBETASOL PROPIONATE [Concomitant]
     Dosage: UNK
     Dates: start: 20000101
  5. HYDROCODONE/ACETAMINOPHEN          /01554201/ [Concomitant]
     Dosage: UNK
     Dates: start: 20111116
  6. ELVITEGRAVIR [Suspect]
     Indication: HIV INFECTION
     Dosage: 150 MG, QD
     Route: 048
     Dates: start: 20090416
  7. PREZISTA [Concomitant]
     Dosage: UNK
     Dates: start: 20090416
  8. VIAGRA [Concomitant]
     Dosage: UNK
     Dates: start: 20101201

REACTIONS (1)
  - ACUTE MYOCARDIAL INFARCTION [None]
